FAERS Safety Report 5859127-X (Version None)
Quarter: 2008Q3

REPORT INFORMATION
  Report Type: 
  Country: None (occurrence: None)
  Receive Date: 20080827
  Receipt Date: 20080825
  Transmission Date: 20090109
  Serious: Yes (Other)
  Sender: FDA-Public Use
  Company Number: PHEH2008US06304

PATIENT
  Sex: Female

DRUGS (1)
  1. VIVELLE-DOT [Suspect]
     Dosage: 0.1 UNK, UNK
     Route: 062

REACTIONS (6)
  - BLISTER [None]
  - BURNS SECOND DEGREE [None]
  - CHEMICAL BURN OF SKIN [None]
  - RASH ERYTHEMATOUS [None]
  - SKIN REACTION [None]
  - URTICARIA [None]
